FAERS Safety Report 24722949 (Version 1)
Quarter: 2024Q4

REPORT INFORMATION
  Report Type: Spontaneous
  Country: FR (occurrence: FR)
  Receive Date: 20241211
  Receipt Date: 20241211
  Transmission Date: 20250114
  Serious: Yes (Life-Threatening)
  Sender: TEVA
  Company Number: None

PATIENT
  Age: 52 Year
  Sex: Male
  Weight: 89 kg

DRUGS (3)
  1. SOTALOL [Suspect]
     Active Substance: SOTALOL
     Indication: Poisoning deliberate
     Dosage: TIME INTERVAL: TOTAL: SOTALOL (HYDROCHLORIDE)
     Route: 048
     Dates: start: 20240724, end: 20240724
  2. FLECAINIDE [Suspect]
     Active Substance: FLECAINIDE
     Indication: Poisoning deliberate
     Dosage: TIME INTERVAL: TOTAL
     Route: 048
     Dates: start: 20240724, end: 20240724
  3. XARELTO [Suspect]
     Active Substance: RIVAROXABAN
     Indication: Poisoning deliberate
     Dosage: TIME INTERVAL: TOTAL
     Route: 048
     Dates: start: 20240724, end: 20240724

REACTIONS (1)
  - Cardiogenic shock [Recovered/Resolved]

NARRATIVE: CASE EVENT DATE: 20240724
